FAERS Safety Report 6929750-X (Version None)
Quarter: 2010Q3

REPORT INFORMATION
  Report Type: 
  Country: None (occurrence: None)
  Receive Date: 20100818
  Receipt Date: 20100812
  Transmission Date: 20110219
  Serious: Yes (Life-Threatening, Hospitalization)
  Sender: FDA-Public Use
  Company Number: FR-SANOFI-AVENTIS-2010SA047800

PATIENT
  Age: 64 Year
  Sex: Male

DRUGS (8)
  1. ARAVA [Suspect]
     Route: 048
     Dates: start: 20030101, end: 20030301
  2. REMICADE [Suspect]
     Route: 042
     Dates: start: 20020829, end: 20030326
  3. METHOTREXATE [Suspect]
     Dates: start: 20040101, end: 20060101
  4. KINERET [Suspect]
     Dates: start: 20030501, end: 20030501
  5. HUMIRA [Suspect]
     Dates: start: 20030601, end: 20030601
  6. ETANERCEPT [Suspect]
     Dates: start: 20030701, end: 20040101
  7. CYCLOSPORINE [Suspect]
     Dates: start: 20040101, end: 20060601
  8. MABTHERA [Suspect]
     Dates: start: 20060101

REACTIONS (1)
  - LUNG NEOPLASM MALIGNANT [None]
